FAERS Safety Report 20143922 (Version 1)
Quarter: 2021Q4

REPORT INFORMATION
  Report Type: Spontaneous
  Country: US (occurrence: None)
  Receive Date: 20211203
  Receipt Date: 20211203
  Transmission Date: 20220303
  Serious: Yes (Other)
  Sender: FDA-Public Use
  Company Number: US-ROCHE-2965741

PATIENT
  Age: 56 Year
  Sex: Female

DRUGS (5)
  1. HERCEPTIN [Suspect]
     Active Substance: TRASTUZUMAB
     Indication: HER2 positive breast cancer
     Dosage: NO
     Route: 041
     Dates: start: 2009, end: 201007
  2. HERCEPTIN [Suspect]
     Active Substance: TRASTUZUMAB
     Indication: Breast cancer metastatic
  3. TAXOTERE [Concomitant]
     Active Substance: DOCETAXEL
     Indication: Breast cancer metastatic
     Dosage: NO
     Route: 042
  4. CYTOXAN [Concomitant]
     Active Substance: CYCLOPHOSPHAMIDE
     Indication: Breast cancer metastatic
     Dosage: NO
     Route: 042
  5. CARVEDILOL [Concomitant]
     Active Substance: CARVEDILOL
     Dosage: YES
     Route: 048
     Dates: start: 2021

REACTIONS (5)
  - Breast cancer metastatic [Unknown]
  - Scar [Not Recovered/Not Resolved]
  - Vein disorder [Unknown]
  - Cardiac dysfunction [Unknown]
  - Blood pressure increased [Unknown]

NARRATIVE: CASE EVENT DATE: 20111001
